FAERS Safety Report 7805900-8 (Version None)
Quarter: 2011Q4

REPORT INFORMATION
  Report Type: 
  Country: None (occurrence: None)
  Receive Date: 20111011
  Receipt Date: 20090218
  Transmission Date: 20120403
  Serious: No
  Sender: FDA-Public Use
  Company Number: 2009BI005874

PATIENT
  Age: 32 Year
  Sex: Female

DRUGS (1)
  1. TYSABRI [Suspect]
     Indication: MULTIPLE SCLEROSIS
     Route: 042
     Dates: start: 20080827, end: 20091209

REACTIONS (18)
  - COUGH [None]
  - ARTHRALGIA [None]
  - HYPERSENSITIVITY [None]
  - MELANOCYTIC NAEVUS [None]
  - EYE PAIN [None]
  - GOITRE [None]
  - TOOTHACHE [None]
  - BRONCHITIS [None]
  - RESPIRATORY TRACT INFECTION [None]
  - THYROID DISORDER [None]
  - CHEST PAIN [None]
  - FATIGUE [None]
  - PRECANCEROUS CELLS PRESENT [None]
  - NIGHT BLINDNESS [None]
  - LARYNGITIS [None]
  - PHARYNGITIS STREPTOCOCCAL [None]
  - WEIGHT INCREASED [None]
  - HEADACHE [None]
